FAERS Safety Report 20743550 (Version 1)
Quarter: 2022Q2

REPORT INFORMATION
  Report Type: Spontaneous
  Country: US (occurrence: US)
  Receive Date: 20220425
  Receipt Date: 20220425
  Transmission Date: 20220721
  Serious: No
  Sender: FDA-Public Use
  Company Number: US-Calliditas-2022CAL00038

PATIENT
  Age: 23 Year
  Sex: Female

DRUGS (1)
  1. TARPEYO [Suspect]
     Active Substance: BUDESONIDE
     Indication: IgA nephropathy
     Dosage: 16 MG DAILY
     Route: 050
     Dates: start: 20220405

REACTIONS (1)
  - Eyelid ptosis [Unknown]

NARRATIVE: CASE EVENT DATE: 20220405
